FAERS Safety Report 9519848 (Version 1)
Quarter: 2013Q1

REPORT INFORMATION
  Report Type: Spontaneous
  Country: US (occurrence: None)
  Receive Date: 20130305
  Receipt Date: 20130305
  Transmission Date: 20140127
  Serious: Yes (Hospitalization)
  Sender: FDA-Public Use
  Company Number: 163-21880-12012814

PATIENT
  Age: 77 Year
  Sex: Female
  Weight: 71.67 kg

DRUGS (9)
  1. REVLIMID [Suspect]
     Indication: PLASMA CELL MYELOMA
     Dosage: 15 MG, DAILY X 21 DAYS, PO
     Route: 048
     Dates: start: 201004
  2. VELCADE [Concomitant]
  3. ACYCLOVIR (ACICLOVIR) (UNKNOWN) [Concomitant]
  4. BACTRIM DS (BACTRIM) (UNKNOWN) [Concomitant]
  5. COMPAZINE (PROCHLORPERAZINE EDISYLATE) (UNKNOWN) [Concomitant]
  6. HCTZ (HYDROCHLOROTHIAZIDE) (UNKNOWN) [Concomitant]
  7. POTASSIUM (POTASSIUM) (UNKNOWN) [Concomitant]
  8. FOLIC ACID (FOLIC ACID) (UNKNOWN) [Concomitant]
  9. COUMADIN (WARFARN SODIUM) (UNKNOWN) [Concomitant]

REACTIONS (2)
  - Abdominal pain [None]
  - Platelet count decreased [None]
